FAERS Safety Report 8613323-7 (Version None)
Quarter: 2012Q3

REPORT INFORMATION
  Report Type: 
  Country: None (occurrence: None)
  Receive Date: 20120822
  Receipt Date: 20120727
  Transmission Date: 20120928
  Serious: Yes (Other)
  Sender: FDA-Public Use
  Company Number: JP-009507513-1207JPN001485

PATIENT

DRUGS (11)
  1. TELAPREVIR [Suspect]
     Dosage: 1500 MG, QD
     Route: 048
     Dates: start: 20120621, end: 20120625
  2. BISOPROLOL FUMARATE [Concomitant]
     Indication: HYPERTENSION
     Route: 048
  3. DIOVAN [Concomitant]
     Indication: HYPERTENSION
     Route: 048
  4. REBETOL [Suspect]
     Route: 048
     Dates: start: 20120711
  5. DOXAZOSIN MESYLATE [Concomitant]
     Indication: HYPERTENSION
     Route: 048
  6. FAMOTIDINE [Concomitant]
     Indication: PROPHYLAXIS
     Route: 048
     Dates: start: 20120629
  7. PEG-INTRON [Suspect]
     Indication: HEPATITIS C
     Dosage: 1.3MCG/KG
     Route: 058
     Dates: start: 20120621
  8. TELAVIC [Suspect]
     Indication: HEPATITIS C
     Route: 048
     Dates: start: 20120621, end: 20120625
  9. REBETOL [Suspect]
     Indication: HEPATITIS C
     Dosage: 800 MG, QD
     Route: 048
     Dates: start: 20120621
  10. REBETOL [Suspect]
     Route: 048
     Dates: start: 20120621, end: 20120710
  11. ALLOPURINOL [Concomitant]
     Indication: PROPHYLAXIS
     Route: 048

REACTIONS (2)
  - RASH [None]
  - DRUG ERUPTION [None]
